FAERS Safety Report 6304982-2 (Version None)
Quarter: 2009Q3

REPORT INFORMATION
  Report Type: 
  Country: None (occurrence: None)
  Receive Date: 20090811
  Receipt Date: 20090804
  Transmission Date: 20100115
  Serious: Yes (Hospitalization)
  Sender: FDA-Public Use
  Company Number: FR-MERCK-0908USA00756

PATIENT
  Age: 84 Year
  Sex: Female

DRUGS (3)
  1. ZOCOR [Suspect]
     Indication: DYSLIPIDAEMIA
     Route: 048
     Dates: end: 20090301
  2. FLUDEX [Suspect]
     Indication: HYPOTENSION
     Route: 048
  3. NEXIUM [Suspect]
     Route: 048

REACTIONS (2)
  - APLASIA PURE RED CELL [None]
  - APLASTIC ANAEMIA [None]
